FAERS Safety Report 15636716 (Version 1)
Quarter: 2018Q4

REPORT INFORMATION
  Report Type: Report from Study
  Country: None (occurrence: US)
  Receive Date: 20181120
  Receipt Date: 20181120
  Transmission Date: 20190205
  Serious: Yes (Other)
  Sender: FDA-Public Use
  Company Number: US-ABBVIE-18K-163-2498300-00

PATIENT
  Age: 55 Year
  Sex: Male

DRUGS (2)
  1. PREDNISONE. [Concomitant]
     Active Substance: PREDNISONE
     Indication: ANKYLOSING SPONDYLITIS
     Route: 048
  2. HUMIRA [Suspect]
     Active Substance: ADALIMUMAB
     Indication: ANKYLOSING SPONDYLITIS
     Route: 058
     Dates: start: 201806

REACTIONS (5)
  - Arthralgia [Unknown]
  - Implant site infection [Not Recovered/Not Resolved]
  - Dental caries [Unknown]
  - Skin cancer [Recovering/Resolving]
  - Musculoskeletal pain [Unknown]

NARRATIVE: CASE EVENT DATE: 2018
